FAERS Safety Report 4455841-1 (Version None)
Quarter: 2004Q3

REPORT INFORMATION
  Report Type: 
  Country: None (occurrence: None)
  Receive Date: 20040920
  Receipt Date: 20040914
  Transmission Date: 20050211
  Serious: Yes (Life-Threatening, Hospitalization)
  Sender: FDA-Public Use
  Company Number: USA-2004-0013235

PATIENT
  Age: 64 Year
  Sex: Female
  Weight: 62.1 kg

DRUGS (8)
  1. SPECTRACEF [Suspect]
     Indication: BRONCHITIS
     Dosage: 400 MG, BID, ORAL
     Route: 048
     Dates: start: 20040107, end: 20040114
  2. SINGULAIR ^MERCK^ (MONTELUKAST SODIUM) [Concomitant]
  3. ADVAIR DISKUS (FLUTICASONE PROPIONATE, SALMETEROL XINAFOATE) [Concomitant]
  4. MEVACOR [Concomitant]
  5. ATACAND [Concomitant]
  6. FLONASE [Concomitant]
  7. ALBUTEROL [Concomitant]
  8. VANCOMYCIN [Concomitant]

REACTIONS (4)
  - CLOSTRIDIUM COLITIS [None]
  - DEHYDRATION [None]
  - LEUKOCYTOSIS [None]
  - PROSTRATION [None]
